FAERS Safety Report 6265222-6 (Version None)
Quarter: 2009Q3

REPORT INFORMATION
  Report Type: 
  Country: None (occurrence: None)
  Receive Date: 20090713
  Receipt Date: 20090707
  Transmission Date: 20100115
  Serious: Yes (Death, Hospitalization, Other)
  Sender: FDA-Public Use
  Company Number: FR-ROCHE-592768

PATIENT
  Sex: Male
  Weight: 77 kg

DRUGS (3)
  1. MYCOPHENOLATE MOFETIL [Suspect]
     Indication: LIVER TRANSPLANT
     Dosage: PERMANENTLY DISCONTINUED ON 10 OCTOBER 2008.
     Route: 048
     Dates: start: 20080715, end: 20080924
  2. CORTANCYL [Suspect]
     Indication: LIVER TRANSPLANT
     Route: 065
     Dates: start: 20080715
  3. MORPHINE [Suspect]
     Indication: DRUG USE FOR UNKNOWN INDICATION
     Route: 065

REACTIONS (6)
  - ASTHENIA [None]
  - CONFUSIONAL STATE [None]
  - HALLUCINATION [None]
  - HEPATIC ARTERY THROMBOSIS [None]
  - INSOMNIA [None]
  - RENAL FAILURE [None]
